FAERS Safety Report 17039430 (Version 3)
Quarter: 2019Q4

REPORT INFORMATION
  Report Type: Spontaneous
  Country: US (occurrence: US)
  Receive Date: 20191115
  Receipt Date: 20191205
  Transmission Date: 20200122
  Serious: Yes (Hospitalization, Other)
  Sender: FDA-Public Use
  Company Number: US-ALLERGAN-1945486US

PATIENT
  Sex: Female

DRUGS (2)
  1. ARMOUR THYROID [Suspect]
     Active Substance: THYROID, PORCINE
     Indication: HYPOTHYROIDISM
     Dosage: 3 X 30MG QD
     Route: 048
     Dates: start: 2013, end: 20191106
  2. GLANDULAR THYROID MEDICATION [Concomitant]
     Indication: THYROID DISORDER
     Route: 048

REACTIONS (39)
  - Blood electrolytes abnormal [Recovering/Resolving]
  - Acidosis [Recovering/Resolving]
  - Oropharyngeal pain [Recovering/Resolving]
  - Nausea [Unknown]
  - Hypotension [Unknown]
  - Eye irritation [Recovering/Resolving]
  - Headache [Recovering/Resolving]
  - Fatigue [Recovering/Resolving]
  - Alopecia [Recovering/Resolving]
  - Inflammation [Recovering/Resolving]
  - Mucosal disorder [Recovering/Resolving]
  - Cyanosis [Unknown]
  - Oral mucosal blistering [Unknown]
  - Pyrexia [Unknown]
  - Respiratory rate increased [Unknown]
  - Abdominal pain upper [Recovering/Resolving]
  - Insomnia [Recovering/Resolving]
  - Tremor [Unknown]
  - Somnolence [Unknown]
  - Vision blurred [Unknown]
  - Eye pain [Unknown]
  - Blindness transient [Recovering/Resolving]
  - Blood calcium increased [Recovering/Resolving]
  - Vomiting [Recovering/Resolving]
  - Tinnitus [Recovering/Resolving]
  - Dyspnoea [Recovering/Resolving]
  - Dizziness [Recovering/Resolving]
  - Visual impairment [Recovering/Resolving]
  - Sinus disorder [Recovering/Resolving]
  - Rectal haemorrhage [Unknown]
  - Rash [Recovering/Resolving]
  - Urticaria [Recovering/Resolving]
  - Blood sodium increased [Recovering/Resolving]
  - Swollen tongue [Unknown]
  - Product formulation issue [Unknown]
  - Toxicity to various agents [Unknown]
  - Hypoaesthesia [Recovering/Resolving]
  - Gastrointestinal disorder [Recovering/Resolving]
  - Asthenia [Unknown]

NARRATIVE: CASE EVENT DATE: 2016
